FAERS Safety Report 6500524-7 (Version None)
Quarter: 2009Q4

REPORT INFORMATION
  Report Type: 
  Country: None (occurrence: None)
  Receive Date: 20091216
  Receipt Date: 20091207
  Transmission Date: 20100525
  Serious: Yes (Hospitalization)
  Sender: FDA-Public Use
  Company Number: GXKR2009ES13189

PATIENT
  Age: 39 Year
  Sex: Male

DRUGS (5)
  1. AZATHIOPRINE [Interacting]
     Indication: CROHN'S DISEASE
     Dosage: 2.5 MG/KG/DAY
     Route: 065
  2. RIBAVIRIN (NGX) [Suspect]
     Indication: HEPATITIS C
     Dosage: 800 MG/DAY
     Route: 065
     Dates: start: 20081201
  3. RIBAVIRIN (NGX) [Interacting]
     Dosage: UNK
     Route: 065
     Dates: start: 20090501
  4. PEG-INTRON [Concomitant]
     Indication: HEPATITIS C
     Dosage: 1.5 UG/KG PER WEEK
     Route: 065
     Dates: start: 20081201
  5. PEG-INTRON [Concomitant]
     Dosage: UNK
     Route: 065
     Dates: start: 20090501

REACTIONS (4)
  - ANAEMIA [None]
  - DRUG INTERACTION [None]
  - NEUTROPHIL COUNT DECREASED [None]
  - PANCYTOPENIA [None]
